FAERS Safety Report 10036217 (Version 2)
Quarter: 2014Q2

REPORT INFORMATION
  Report Type: Report from Study
  Country: US (occurrence: US)
  Receive Date: 20140325
  Receipt Date: 20140409
  Transmission Date: 20141212
  Serious: Yes (Other)
  Sender: FDA-Public Use
  Company Number: US-B.I. PHARMACEUTICALS,INC./RIDGEFIELD-2014-BI-12131BP

PATIENT
  Age: 40 Year
  Sex: Female

DRUGS (2)
  1. VIRAMUNE [Suspect]
     Indication: ANTIVIRAL TREATMENT
     Dosage: 400 MG
     Route: 048
  2. 25-ABACAVIR+LAMIVUDINE (EPZICOM?, EPZ) [Concomitant]
     Indication: ANTIVIRAL TREATMENT
     Dosage: 1 ANZ
     Route: 048
     Dates: start: 20131112

REACTIONS (5)
  - Abortion spontaneous [Unknown]
  - Ascites [Unknown]
  - Disseminated tuberculosis [Unknown]
  - Oligohydramnios [Unknown]
  - Oligohydramnios [Unknown]
